FAERS Safety Report 5451666-9 (Version None)
Quarter: 2007Q3

REPORT INFORMATION
  Report Type: 
  Country: None (occurrence: None)
  Receive Date: 20070913
  Receipt Date: 20070902
  Transmission Date: 20080115
  Serious: Yes (Hospitalization, Other)
  Sender: FDA-Public Use
  Company Number: IE-PFIZER INC-2007073535

PATIENT
  Age: 21 Year
  Sex: Female

DRUGS (3)
  1. CHAMPIX [Suspect]
  2. DIAZEPAM [Suspect]
  3. ALCOHOL [Suspect]

REACTIONS (1)
  - OVERDOSE [None]
